FAERS Safety Report 23502799 (Version 1)
Quarter: 2024Q1

REPORT INFORMATION
  Report Type: Spontaneous
  Country: US (occurrence: US)
  Receive Date: 20240208
  Receipt Date: 20240208
  Transmission Date: 20240410
  Serious: No
  Sender: FDA-Public Use
  Company Number: US-INTRA-CELLULAR THERAPIES, INC.-2023ICT01114

PATIENT
  Age: 59 Year
  Sex: Female

DRUGS (5)
  1. CAPLYTA [Suspect]
     Active Substance: LUMATEPERONE
     Indication: Bipolar disorder
     Dosage: 42 MG, 1X/DAY
  2. CAPLYTA [Suspect]
     Active Substance: LUMATEPERONE
     Dosage: UNK UNK, 1X/DAY
  3. TRAZODONE [Concomitant]
     Active Substance: TRAZODONE HYDROCHLORIDE
  4. BENZODIAZEPINE [Concomitant]
     Active Substance: BENZODIAZEPINE
  5. UNSPECIFIED MAO INHIBITOR [Concomitant]

REACTIONS (2)
  - Mania [Unknown]
  - Musculoskeletal stiffness [Not Recovered/Not Resolved]
